FAERS Safety Report 10055546 (Version 1)
Quarter: 2014Q2

REPORT INFORMATION
  Report Type: Spontaneous
  Country: US (occurrence: None)
  Receive Date: 20140402
  Receipt Date: 20140402
  Transmission Date: 20141212
  Serious: Yes (Death)
  Sender: FDA-Public Use
  Company Number: None

PATIENT
  Age: 43 Year
  Sex: Female
  Weight: 57.4 kg

DRUGS (2)
  1. THYMOGLOBULIN 25 MG [Suspect]
     Indication: IMMUNOSUPPRESSANT DRUG THERAPY
     Dosage: 75 MG/100 ML, 75MG X1, 50 MG X1, INTRAVENOUS
     Dates: start: 20140321, end: 20140323
  2. THYMOGLOBULIN 25 MG [Suspect]
     Indication: RENAL TRANSPLANT
     Dosage: 75 MG/100 ML, 75MG X1, 50 MG X1, INTRAVENOUS
     Dates: start: 20140321, end: 20140323

REACTIONS (5)
  - Procedural hypotension [None]
  - Postoperative fever [None]
  - Cytokine release syndrome [None]
  - Pneumonia [None]
  - Ischaemic hepatitis [None]
